FAERS Safety Report 20540950 (Version 1)
Quarter: 2022Q1

REPORT INFORMATION
  Report Type: Spontaneous
  Country: US (occurrence: None)
  Receive Date: 20220302
  Receipt Date: 20220302
  Transmission Date: 20220423
  Serious: Yes (Hospitalization, Other)
  Sender: FDA-Public Use
  Company Number: None

PATIENT
  Age: 33 Year
  Sex: Female
  Weight: 54 kg

DRUGS (4)
  1. HALDOL (HALOPERIDOL LACTATE) [Suspect]
     Active Substance: HALOPERIDOL LACTATE
  2. ONDANSETRON [Suspect]
     Active Substance: ONDANSETRON
  3. METOCLOPRAMIDE HYDROCHLORIDE [Suspect]
     Active Substance: METOCLOPRAMIDE HYDROCHLORIDE
  4. TYLENOL [Concomitant]
     Active Substance: ACETAMINOPHEN

REACTIONS (10)
  - Heart rate increased [None]
  - Depression [None]
  - Malaise [None]
  - Restlessness [None]
  - Nausea [None]
  - Feeling abnormal [None]
  - Fatigue [None]
  - Negative thoughts [None]
  - Insomnia [None]
  - Pollakiuria [None]

NARRATIVE: CASE EVENT DATE: 20220215
